FAERS Safety Report 4773171-5 (Version None)
Quarter: 2005Q3

REPORT INFORMATION
  Report Type: 
  Country: None (occurrence: None)
  Receive Date: 20050919
  Receipt Date: 20041125
  Transmission Date: 20060218
  Serious: Yes (Other)
  Sender: FDA-Public Use
  Company Number: FR-MERCK-0411FRA00097

PATIENT
  Age: 39 Year
  Sex: Female
  Weight: 100 kg

DRUGS (2)
  1. NOROXIN [Suspect]
     Indication: URINARY TRACT INFECTION
     Route: 048
     Dates: start: 20040921, end: 20040926
  2. TRIMETHYLPHLOROGLUCINOL AND PHLOROGLUCINOL [Concomitant]
     Indication: URINARY TRACT INFECTION
     Route: 048
     Dates: start: 20040921, end: 20040922

REACTIONS (1)
  - ENTHESOPATHY [None]
